FAERS Safety Report 25253700 (Version 1)
Quarter: 2025Q2

REPORT INFORMATION
  Report Type: Spontaneous
  Country: JP (occurrence: JP)
  Receive Date: 20250430
  Receipt Date: 20250430
  Transmission Date: 20250716
  Serious: Yes (Other)
  Sender: GENMAB
  Company Number: JP-GENMAB-2025-01139

PATIENT
  Age: 9 Decade
  Sex: Male

DRUGS (1)
  1. EPKINLY [Suspect]
     Active Substance: EPCORITAMAB-BYSP
     Indication: Diffuse large B-cell lymphoma
     Route: 058
     Dates: start: 2025, end: 2025

REACTIONS (10)
  - Immobile [Recovered/Resolved]
  - Metastases to central nervous system [Unknown]
  - CSF test abnormal [Unknown]
  - Encephalitis viral [Unknown]
  - Depressed level of consciousness [Recovered/Resolved]
  - Immune effector cell-associated neurotoxicity syndrome [Recovered/Resolved]
  - Affect lability [Unknown]
  - Patient elopement [Unknown]
  - Varicella virus test positive [Unknown]
  - Intentional medical device removal by patient [Unknown]

NARRATIVE: CASE EVENT DATE: 20250101
